FAERS Safety Report 9472613 (Version 1)
Quarter: 2013Q3

REPORT INFORMATION
  Report Type: Spontaneous
  Country: GB (occurrence: GB)
  Receive Date: 20130823
  Receipt Date: 20130823
  Transmission Date: 20140515
  Serious: Yes (Life-Threatening, Hospitalization, Disabling, Other)
  Sender: FDA-Public Use
  Company Number: GB-MYLANLABS-2013S1017939

PATIENT
  Age: 42 Year
  Sex: Female

DRUGS (4)
  1. LAMOTRIGINE [Suspect]
     Indication: EPILEPSY
     Route: 048
     Dates: start: 20121012, end: 20121028
  2. LAMOTRIGINE [Suspect]
     Indication: MOOD SWINGS
     Route: 048
     Dates: start: 20121012, end: 20121028
  3. LORAZEPAM [Concomitant]
     Indication: PRODUCT USED FOR UNKNOWN INDICATION
  4. THYROXINE [Concomitant]
     Indication: PRODUCT USED FOR UNKNOWN INDICATION

REACTIONS (9)
  - Anaemia [Unknown]
  - Haemorrhage [Unknown]
  - Contusion [Unknown]
  - Dyspnoea [Unknown]
  - Hypotension [Unknown]
  - Mouth ulceration [Unknown]
  - Stevens-Johnson syndrome [Not Recovered/Not Resolved]
  - Thrombocytopenia [Not Recovered/Not Resolved]
  - Dysuria [Unknown]
